FAERS Safety Report 14354833 (Version 1)
Quarter: 2018Q1

REPORT INFORMATION
  Report Type: Spontaneous
  Country: US (occurrence: US)
  Receive Date: 20180105
  Receipt Date: 20180105
  Transmission Date: 20180509
  Serious: Yes (Other)
  Sender: FDA-Public Use
  Company Number: US-IBIGEN-2016.02351

PATIENT
  Age: 30 Year
  Sex: Female

DRUGS (1)
  1. PIPERACILLIN AND TAZOBACTAM [Suspect]
     Active Substance: PIPERACILLIN SODIUM\TAZOBACTAM SODIUM
     Indication: PNEUMONIA

REACTIONS (3)
  - Tubulointerstitial nephritis [Recovering/Resolving]
  - Hepatitis [Recovering/Resolving]
  - Serum sickness-like reaction [Recovering/Resolving]
